FAERS Safety Report 6456403-7 (Version None)
Quarter: 2009Q4

REPORT INFORMATION
  Report Type: 
  Country: None (occurrence: None)
  Receive Date: 20091125
  Receipt Date: 20091116
  Transmission Date: 20100525
  Serious: Yes (Life-Threatening, Hospitalization, Other)
  Sender: FDA-Public Use
  Company Number: PHHY2008BR13147

PATIENT
  Sex: Female

DRUGS (15)
  1. FORASEQ [Suspect]
     Indication: BRONCHITIS
     Dosage: 12/400 MCG
     Dates: start: 19980101
  2. FORASEQ [Suspect]
     Indication: CHRONIC OBSTRUCTIVE PULMONARY DISEASE
     Dosage: UNK
     Dates: start: 20020101
  3. FORASEQ [Suspect]
     Indication: EMPHYSEMA
     Dosage: UNK
     Dates: start: 20050101
  4. FORASEQ [Suspect]
     Dosage: UNK
     Dates: start: 20060301
  5. ANTIHYPERTENSIVE DRUGS [Suspect]
  6. CORTISONE [Suspect]
  7. COMBIVENT [Concomitant]
     Indication: CHRONIC OBSTRUCTIVE PULMONARY DISEASE
     Dosage: UNK
     Route: 048
     Dates: start: 20060101
  8. ATROVENT [Concomitant]
     Indication: CHRONIC OBSTRUCTIVE PULMONARY DISEASE
     Dosage: UNK
     Dates: start: 19980101
  9. BEROTEC [Concomitant]
     Indication: CHRONIC OBSTRUCTIVE PULMONARY DISEASE
     Dosage: UNK
     Dates: start: 19980101
  10. OXYGEN [Concomitant]
     Indication: CHRONIC OBSTRUCTIVE PULMONARY DISEASE
     Dosage: 20 HOURS PER DAY
  11. BROMAZEPAM [Concomitant]
     Dosage: 1 TABLET IN NIGHT
     Route: 048
     Dates: start: 20080601
  12. SPIRIVA [Concomitant]
     Dosage: UNK
  13. CALCIUM CARBONATE [Concomitant]
  14. VITAMIN D [Concomitant]
     Dosage: 1 TABLET IN THE MORNING AND AT NIGHT,
     Route: 048
     Dates: start: 20080101
  15. PARACETAMOL [Concomitant]
     Indication: PAIN

REACTIONS (47)
  - ABNORMAL FAECES [None]
  - ALOPECIA [None]
  - ARTHRALGIA [None]
  - BLISTER [None]
  - BONE DISORDER [None]
  - CATARACT [None]
  - CATARACT OPERATION [None]
  - CHEST PAIN [None]
  - COMA [None]
  - CONFUSIONAL STATE [None]
  - CONVULSION [None]
  - COUGH [None]
  - DEPRESSION [None]
  - DERMATITIS ALLERGIC [None]
  - DRUG INEFFECTIVE [None]
  - DYSPNOEA [None]
  - FEELING ABNORMAL [None]
  - FREQUENT BOWEL MOVEMENTS [None]
  - GAIT DISTURBANCE [None]
  - GENERAL PHYSICAL HEALTH DETERIORATION [None]
  - HAEMOPTYSIS [None]
  - HAIR COLOUR CHANGES [None]
  - HAIR DISORDER [None]
  - HEAD INJURY [None]
  - IMMUNODEFICIENCY [None]
  - INTESTINAL FUNCTIONAL DISORDER [None]
  - LUNG TRANSPLANT [None]
  - NASOPHARYNGITIS [None]
  - NAUSEA [None]
  - NOSOCOMIAL INFECTION [None]
  - PAIN [None]
  - PNEUMONIA [None]
  - PROCTALGIA [None]
  - PRODUCT TASTE ABNORMAL [None]
  - PULMONARY HYPERTENSION [None]
  - PYREXIA [None]
  - RESPIRATORY ARREST [None]
  - RESPIRATORY TRACT INFECTION [None]
  - SKIN EXFOLIATION [None]
  - SPUTUM DISCOLOURED [None]
  - SUICIDAL IDEATION [None]
  - SYNCOPE [None]
  - TOTAL LUNG CAPACITY DECREASED [None]
  - TREATMENT NONCOMPLIANCE [None]
  - VULVOVAGINAL DISCOMFORT [None]
  - WEIGHT DECREASED [None]
  - WRONG DRUG ADMINISTERED [None]
